FAERS Safety Report 19569394 (Version 1)
Quarter: 2021Q3

REPORT INFORMATION
  Report Type: Spontaneous
  Country: NL (occurrence: NL)
  Receive Date: 20210715
  Receipt Date: 20210715
  Transmission Date: 20211014
  Serious: Yes (Other)
  Sender: FDA-Public Use
  Company Number: NL-GLAXOSMITHKLINE-NLCH2021045478

PATIENT
  Age: 45 Year
  Sex: Male
  Weight: 78 kg

DRUGS (3)
  1. IBUPROFEN. [Suspect]
     Active Substance: IBUPROFEN
     Indication: GOUT
     Dosage: 1 DF, TID, (3X A DAY.ON THE DAY OF THE CORONA VACCINATION, ONLY 1 X FOR THE VACCINATION.)
     Route: 065
     Dates: start: 20210606, end: 20210612
  2. VOLTAREN EMULGEL EXTRA STRONG [Suspect]
     Active Substance: DICLOFENAC DIETHYLAMINE
     Indication: GOUT
     Dosage: 1 DF, BID, (2 X A DAY, NO LONGER ON THE DAY OF CORONA VACCINATION)
     Route: 065
     Dates: start: 20210606, end: 20210612
  3. PFIZER?BIONTECH COVID?19 VACCINE [Suspect]
     Active Substance: TOZINAMERAN
     Indication: COVID-19 IMMUNISATION
     Dosage: 1 DF
     Route: 065
     Dates: start: 20210612

REACTIONS (2)
  - Eye haematoma [Not Recovered/Not Resolved]
  - Ocular discomfort [Not Recovered/Not Resolved]

NARRATIVE: CASE EVENT DATE: 20210612
